FAERS Safety Report 10244184 (Version 1)
Quarter: 2014Q2

REPORT INFORMATION
  Report Type: Spontaneous
  Country: DE (occurrence: MY)
  Receive Date: 20140618
  Receipt Date: 20140618
  Transmission Date: 20141212
  Serious: Yes (Other)
  Sender: FDA-Public Use
  Company Number: MY-FRI-1000068234

PATIENT
  Age: 62 Year
  Sex: Female

DRUGS (1)
  1. MEMANTINE [Suspect]
     Indication: DEMENTIA ALZHEIMER^S TYPE
     Dosage: 10 MG
     Route: 048
     Dates: start: 20140508, end: 20140604

REACTIONS (1)
  - Generalised tonic-clonic seizure [Recovered/Resolved]
